FAERS Safety Report 25740319 (Version 2)
Quarter: 2025Q3

REPORT INFORMATION
  Report Type: Spontaneous
  Country: EU (occurrence: EU)
  Receive Date: 20250829
  Receipt Date: 20250903
  Transmission Date: 20251020
  Serious: Yes (Hospitalization)
  Sender: MYLAN
  Company Number: EU-MYLANLABS-2025M1073243

PATIENT
  Age: 68 Year
  Sex: Female

DRUGS (6)
  1. ATORVASTATIN [Suspect]
     Active Substance: ATORVASTATIN
     Indication: Stress cardiomyopathy
  2. ASPIRIN [Suspect]
     Active Substance: ASPIRIN
     Indication: Stress cardiomyopathy
  3. ASPIRIN [Suspect]
     Active Substance: ASPIRIN
     Indication: Antiplatelet therapy
  4. RAMIPRIL [Suspect]
     Active Substance: RAMIPRIL
     Indication: Stress cardiomyopathy
  5. PAROXETINE [Concomitant]
     Active Substance: PAROXETINE
     Indication: Depression
  6. ISOPROTERENOL HYDROCHLORIDE [Concomitant]
     Active Substance: ISOPROTERENOL HYDROCHLORIDE
     Indication: Atrioventricular block

REACTIONS (2)
  - Drug ineffective [Unknown]
  - Off label use [Unknown]
